FAERS Safety Report 18356022 (Version 1)
Quarter: 2020Q4

REPORT INFORMATION
  Report Type: Spontaneous
  Country: US (occurrence: US)
  Receive Date: 20201007
  Receipt Date: 20201007
  Transmission Date: 20210114
  Serious: Yes (Other)
  Sender: FDA-Public Use
  Company Number: US-PURDUE-USA-2020-0168967

PATIENT
  Sex: Female

DRUGS (1)
  1. OXYCONTIN [Suspect]
     Active Substance: OXYCODONE HYDROCHLORIDE
     Indication: PRODUCT USED FOR UNKNOWN INDICATION
     Dosage: UNK
     Route: 048

REACTIONS (22)
  - Adverse drug reaction [Unknown]
  - Dizziness [Unknown]
  - Pruritus [Unknown]
  - Dry mouth [Unknown]
  - Dyspnoea [Unknown]
  - Constipation [Unknown]
  - Emotional distress [Unknown]
  - Mood swings [Unknown]
  - Suicidal ideation [Unknown]
  - Angina pectoris [Unknown]
  - Vomiting [Unknown]
  - Syncope [Unknown]
  - Depression [Unknown]
  - Heart rate irregular [Unknown]
  - Pain [Unknown]
  - Drug dependence [Unknown]
  - Drug withdrawal syndrome [Unknown]
  - Loss of consciousness [Unknown]
  - Injury [Unknown]
  - Headache [Unknown]
  - Hyperhidrosis [Unknown]
  - Unevaluable event [Unknown]
